FAERS Safety Report 17549791 (Version 1)
Quarter: 2020Q1

REPORT INFORMATION
  Report Type: Spontaneous
  Country: DE (occurrence: DE)
  Receive Date: 20200317
  Receipt Date: 20200317
  Transmission Date: 20200409
  Serious: No
  Sender: FDA-Public Use
  Company Number: DE-ALKEM LABORATORIES LIMITED-DE-ALKEM-2019-10338

PATIENT
  Age: 36 Year
  Sex: Male
  Weight: 79 kg

DRUGS (2)
  1. SOLIFENACIN [Suspect]
     Active Substance: SOLIFENACIN
     Indication: GENITOURINARY TRACT INFECTION
     Dosage: 1 DOSAGE FORM, QD, (1 TABLETTE PRO TAG)
     Route: 048
     Dates: start: 201908, end: 201908
  2. SOLIFENACIN [Suspect]
     Active Substance: SOLIFENACIN
     Dosage: 1 DOSAGE FORM, QD, (1 TABLETTE PRO TAG)
     Route: 048
     Dates: start: 201911, end: 201911

REACTIONS (1)
  - Fatigue [Recovered/Resolved]

NARRATIVE: CASE EVENT DATE: 20190801
